FAERS Safety Report 4333678-1 (Version None)
Quarter: 2004Q2

REPORT INFORMATION
  Report Type: 
  Country: None (occurrence: None)
  Receive Date: 20040406
  Receipt Date: 20040406
  Transmission Date: 20050107
  Serious: Yes (Hospitalization)
  Sender: FDA-Public Use
  Company Number: None

PATIENT
  Age: 70 Year
  Sex: Female
  Weight: 55.9 kg

DRUGS (6)
  1. PENICILLIN [Suspect]
     Indication: PNEUMONIA STREPTOCOCCAL
     Dosage: 4 MU IV Q 8 H
     Route: 042
     Dates: start: 20040312, end: 20040313
  2. FOLIC ACID [Concomitant]
  3. SYNTHROID [Concomitant]
  4. HALDOL [Concomitant]
  5. DOPAMINE HCL [Concomitant]
  6. NEO-SYNEPHRINE [Concomitant]

REACTIONS (1)
  - CONVULSION [None]
